FAERS Safety Report 9252114 (Version 2)
Quarter: 2013Q2

REPORT INFORMATION
  Report Type: Spontaneous
  Country: TR (occurrence: TR)
  Receive Date: 20130424
  Receipt Date: 20130501
  Transmission Date: 20140414
  Serious: Yes (Other)
  Sender: FDA-Public Use
  Company Number: PHHY2013TR038222

PATIENT
  Age: 17 Year
  Sex: Female

DRUGS (7)
  1. METHYLPREDNISOLONE [Suspect]
     Indication: GLOMERULONEPHRITIS MEMBRANOPROLIFERATIVE
     Dosage: UNK UKN, UNK
     Route: 042
  2. METHYLPREDNISOLONE [Suspect]
     Dosage: 10 MG, UNK
     Route: 042
  3. PREDNISOLONE [Suspect]
     Indication: GLOMERULONEPHRITIS MEMBRANOPROLIFERATIVE
     Dosage: 40 MG, UNK
     Route: 048
  4. PREDNISOLONE [Suspect]
     Dosage: 10 MG, UNK
     Route: 048
  5. CYCLOPHOSPHAMIDE [Concomitant]
     Indication: GLOMERULONEPHRITIS MEMBRANOPROLIFERATIVE
     Route: 042
  6. AZATHIOPRINE [Concomitant]
     Indication: GLOMERULONEPHRITIS MEMBRANOPROLIFERATIVE
  7. MYCOPHENOLATE MOFETIL [Concomitant]
     Indication: GLOMERULONEPHRITIS MEMBRANOPROLIFERATIVE
     Dosage: 1000 MG, UNK

REACTIONS (10)
  - Left ventricular hypertrophy [Unknown]
  - Pericardial effusion [Unknown]
  - Oedema peripheral [Unknown]
  - Cardiac murmur [Unknown]
  - Pallor [Unknown]
  - Lipomatosis [Recovering/Resolving]
  - Cushingoid [Unknown]
  - Hypertension [Unknown]
  - Lipohypertrophy [Unknown]
  - General physical health deterioration [Recovering/Resolving]
